FAERS Safety Report 6942934-X (Version None)
Quarter: 2010Q3

REPORT INFORMATION
  Report Type: 
  Country: None (occurrence: None)
  Receive Date: 20100826
  Receipt Date: 20100816
  Transmission Date: 20110219
  Serious: Yes (Other)
  Sender: FDA-Public Use
  Company Number: PHHY2010CA54330

PATIENT

DRUGS (1)
  1. EXELON [Suspect]
     Dosage: UNK
     Route: 048

REACTIONS (2)
  - CHOKING [None]
  - DYSPHAGIA [None]
